FAERS Safety Report 8579544-7 (Version None)
Quarter: 2012Q3

REPORT INFORMATION
  Report Type: 
  Country: None (occurrence: None)
  Receive Date: 20120808
  Receipt Date: 20111001
  Transmission Date: 20120928
  Serious: Yes (Other)
  Sender: FDA-Public Use
  Company Number: US-B.I. PHARMACEUTICALS,INC./RIDGEFIELD-2012-BP-17708BP

PATIENT

DRUGS (1)
  1. PRADAXA [Suspect]
     Indication: OFF LABEL USE
     Dosage: 300 MG

REACTIONS (1)
  - HAEMORRHAGE [None]
